FAERS Safety Report 4774017-1 (Version None)
Quarter: 2005Q3

REPORT INFORMATION
  Report Type: 
  Country: None (occurrence: None)
  Receive Date: 20050920
  Receipt Date: 20050913
  Transmission Date: 20060218
  Serious: Yes (Hospitalization)
  Sender: FDA-Public Use
  Company Number: FR-BRISTOL-MYERS SQUIBB COMPANY-13111315

PATIENT
  Sex: Female

DRUGS (1)
  1. COAPROVEL TABS 300MG/12.5MG [Suspect]
     Route: 048

REACTIONS (1)
  - HEPATITIS FULMINANT [None]
